FAERS Safety Report 10202379 (Version 1)
Quarter: 2014Q2

REPORT INFORMATION
  Report Type: Spontaneous
  Country: US (occurrence: US)
  Receive Date: 20140528
  Receipt Date: 20140528
  Transmission Date: 20141212
  Serious: No
  Sender: FDA-Public Use
  Company Number: US-BRISTOL-MYERS SQUIBB COMPANY-20590089

PATIENT
  Age: 59 Year
  Sex: Female
  Weight: 74.83 kg

DRUGS (4)
  1. BYETTA PEN DISPOSABLE [Suspect]
     Dates: start: 201305
  2. METFORMIN HCL [Suspect]
  3. LEVEMIR [Suspect]
  4. GLIMEPIRIDE [Suspect]

REACTIONS (5)
  - Nausea [Unknown]
  - Blood glucose decreased [Unknown]
  - Feeling abnormal [Unknown]
  - Hyperhidrosis [Unknown]
  - Drug dose omission [Unknown]
